FAERS Safety Report 8088553-6 (Version None)
Quarter: 2012Q1

REPORT INFORMATION
  Report Type: 
  Country: None (occurrence: None)
  Receive Date: 20120128
  Receipt Date: 20110502
  Transmission Date: 20120608
  Serious: No
  Sender: FDA-Public Use
  Company Number: US-ABBOTT-11P-163-0717423-00

PATIENT
  Age: 53 Year
  Sex: Female

DRUGS (2)
  1. HUMIRA [Suspect]
     Indication: CROHN'S DISEASE
     Dates: start: 20110309
  2. SIMVASTATIN [Concomitant]
     Indication: BLOOD CHOLESTEROL INCREASED
     Route: 048

REACTIONS (7)
  - FAECAL INCONTINENCE [None]
  - COUGH [None]
  - THROAT IRRITATION [None]
  - CROHN'S DISEASE [None]
  - SINUS CONGESTION [None]
  - SINUSITIS [None]
  - OROPHARYNGEAL PAIN [None]
